FAERS Safety Report 7684333 (Version 4)
Quarter: 2013Q1

REPORT INFORMATION
  Report Type: Report from Study
  Country: DE (occurrence: DE)
  Receive Date: 20101129
  Receipt Date: 20130211
  Transmission Date: 20140127
  Serious: Yes (Other)
  Sender: FDA-Public Use
  Company Number: PHHY2010DE79190

PATIENT
  Age: 74 Year
  Sex: Female
  Weight: 61 kg

DRUGS (6)
  1. ZOLEDRONATE [Suspect]
     Indication: BONE DISORDER
     Dosage: 4 MG, EVERY 4 WEEKS
     Route: 042
     Dates: start: 20090630, end: 20100809
  2. HERCEPTIN [Concomitant]
     Dosage: UNK UKN, UNK
     Dates: start: 20091208
  3. NAVELBINE [Concomitant]
     Dosage: UNK UKN, UNK
     Dates: start: 20100308
  4. TAXOL [Concomitant]
     Dosage: UNK UKN, UNK
     Dates: start: 20100510
  5. CYCLOSPORINE [Concomitant]
     Dosage: UNK UKN, UNK
  6. VINCRISTINE [Concomitant]
     Dosage: 42 MG, QW3
     Dates: end: 20100426

REACTIONS (25)
  - Osteonecrosis of jaw [Not Recovered/Not Resolved]
  - Mouth ulceration [Not Recovered/Not Resolved]
  - Malignant neoplasm progression [Unknown]
  - Bone lesion [Unknown]
  - Swelling [Unknown]
  - Infection [Unknown]
  - Erythema [Unknown]
  - Metastases to bone [Unknown]
  - Metastases to liver [Unknown]
  - Metastases to lymph nodes [Unknown]
  - General physical health deterioration [Unknown]
  - Depression [Not Recovered/Not Resolved]
  - Blood potassium increased [Recovered/Resolved]
  - Blood urea increased [Recovered/Resolved]
  - Weight decreased [Recovered/Resolved]
  - Erythropenia [Not Recovered/Not Resolved]
  - Haemoglobin decreased [Not Recovered/Not Resolved]
  - Gamma-glutamyltransferase increased [Not Recovered/Not Resolved]
  - Alanine aminotransferase increased [Not Recovered/Not Resolved]
  - Asthenia [Not Recovered/Not Resolved]
  - Injury associated with device [Not Recovered/Not Resolved]
  - Musculoskeletal stiffness [Not Recovered/Not Resolved]
  - Aspartate aminotransferase increased [Not Recovered/Not Resolved]
  - Chest pain [Not Recovered/Not Resolved]
  - Dysphonia [Not Recovered/Not Resolved]
